FAERS Safety Report 22520676 (Version 1)
Quarter: 2023Q2

REPORT INFORMATION
  Report Type: Spontaneous
  Country: US (occurrence: US)
  Receive Date: 20230605
  Receipt Date: 20230605
  Transmission Date: 20230722
  Serious: Yes (Other)
  Sender: FDA-Public Use
  Company Number: US-BRISTOL-MYERS SQUIBB COMPANY-2023-078619

PATIENT
  Sex: Female

DRUGS (6)
  1. NIVOLUMAB [Suspect]
     Active Substance: NIVOLUMAB
     Indication: Renal cell carcinoma
  2. NIVOLUMAB [Suspect]
     Active Substance: NIVOLUMAB
     Indication: Gastrointestinal cancer metastatic
  3. IPILIMUMAB [Suspect]
     Active Substance: IPILIMUMAB
     Indication: Renal cell carcinoma
  4. IPILIMUMAB [Suspect]
     Active Substance: IPILIMUMAB
     Indication: Gastrointestinal cancer metastatic
  5. INLYTA [Suspect]
     Active Substance: AXITINIB
     Indication: Renal cell carcinoma
     Dosage: DOSE:  5 MG, 30-DAY SUPPLY, FREQUENCY: 1BID. INDICATE NUMBER OF REFILLS: 11
     Route: 048
  6. INLYTA [Suspect]
     Active Substance: AXITINIB
     Indication: Gastrointestinal cancer metastatic

REACTIONS (1)
  - Drug ineffective [Unknown]
